FAERS Safety Report 7705120-1 (Version None)
Quarter: 2011Q3

REPORT INFORMATION
  Report Type: 
  Country: None (occurrence: None)
  Receive Date: 20110824
  Receipt Date: 20110811
  Transmission Date: 20111222
  Serious: Yes (Hospitalization)
  Sender: FDA-Public Use
  Company Number: US-BIOGENIDEC-2011BI030662

PATIENT
  Age: 39 Year
  Sex: Female
  Weight: 52 kg

DRUGS (8)
  1. TOPAMAX [Concomitant]
     Indication: MIGRAINE
     Route: 048
  2. METHADONE HYDROCHLORIDE [Concomitant]
     Route: 048
  3. NEURONTIN [Concomitant]
     Route: 048
  4. VITAMIN C WITH SORBATE [Concomitant]
  5. TRAZODONE HCL [Concomitant]
     Route: 048
  6. TYSABRI [Suspect]
     Indication: CROHN'S DISEASE
     Route: 042
     Dates: start: 20100813
  7. MULTI-VITAMIN [Concomitant]
  8. VITAMIN B-12 [Concomitant]

REACTIONS (1)
  - MIGRAINE [None]
